FAERS Safety Report 9419480 (Version 2)
Quarter: 2013Q4

REPORT INFORMATION
  Report Type: Spontaneous
  Country: US (occurrence: US)
  Receive Date: 20130725
  Receipt Date: 20131016
  Transmission Date: 20140711
  Serious: Yes (Other)
  Sender: FDA-Public Use
  Company Number: US-NOVOPROD-383327

PATIENT
  Sex: Male
  Weight: 145.13 kg

DRUGS (4)
  1. VICTOZA [Suspect]
     Indication: TYPE 2 DIABETES MELLITUS
     Dosage: 1.8 MG, QD
     Route: 058
     Dates: start: 20130415, end: 201307
  2. VICTOZA [Suspect]
     Indication: WEIGHT DECREASED
  3. VICTOZA [Suspect]
     Indication: OFF LABEL USE
  4. INSULIN [Concomitant]
     Indication: TYPE 2 DIABETES MELLITUS
     Route: 058

REACTIONS (3)
  - Pancreatic carcinoma metastatic [Unknown]
  - Cholelithiasis [Unknown]
  - Off label use [Unknown]
